FAERS Safety Report 6305783-1 (Version None)
Quarter: 2009Q3

REPORT INFORMATION
  Report Type: 
  Country: None (occurrence: None)
  Receive Date: 20090812
  Receipt Date: 20070625
  Transmission Date: 20100115
  Serious: Yes (Other)
  Sender: FDA-Public Use
  Company Number: US-ASTRAZENECA-2006UW11823

PATIENT
  Age: 16230 Day
  Sex: Male
  Weight: 96.5 kg

DRUGS (16)
  1. SEROQUEL [Suspect]
     Indication: SLEEP DISORDER
     Dosage: 100 MG TO 800 MG
     Route: 048
     Dates: start: 20020510
  2. SEROQUEL [Suspect]
     Indication: INSOMNIA
     Dosage: 100 MG TO 800 MG
     Route: 048
     Dates: start: 20020510
  3. SEROQUEL [Suspect]
     Route: 048
  4. SEROQUEL [Suspect]
     Route: 048
  5. ABILIFY [Concomitant]
     Dates: start: 20050101
  6. ABILIFY [Concomitant]
     Dates: start: 20060523
  7. LEXAPRO [Concomitant]
     Route: 048
     Dates: start: 20041020
  8. NEXIUM [Concomitant]
     Indication: GASTROOESOPHAGEAL REFLUX DISEASE
     Route: 048
     Dates: start: 20041027
  9. MONOPRIL [Concomitant]
     Route: 048
     Dates: start: 20041020
  10. WELLBUTRIN [Concomitant]
     Indication: DEPRESSION
     Dates: start: 20041020
  11. ACTOS [Concomitant]
     Indication: DIABETES MELLITUS
     Dates: start: 20060523
  12. NEURONTIN [Concomitant]
     Dosage: 300 MG TO 3600 MG
     Dates: start: 20041020
  13. ASPIRIN [Concomitant]
     Dates: start: 20060523
  14. LIPITOR [Concomitant]
     Dates: start: 20060523
  15. VIAGRA [Concomitant]
     Dates: start: 20060523
  16. LOSARTAN [Concomitant]
     Dosage: ONCE A DAY
     Dates: start: 20060523

REACTIONS (5)
  - DIABETES MELLITUS [None]
  - INSULIN RESISTANCE [None]
  - INSULIN-REQUIRING TYPE 2 DIABETES MELLITUS [None]
  - NEUROPATHY PERIPHERAL [None]
  - TYPE 2 DIABETES MELLITUS [None]
